FAERS Safety Report 8484353-3 (Version None)
Quarter: 2012Q3

REPORT INFORMATION
  Report Type: 
  Country: None (occurrence: None)
  Receive Date: 20120703
  Receipt Date: 20120627
  Transmission Date: 20120928
  Serious: Yes (Other)
  Sender: FDA-Public Use
  Company Number: PHEH2012US012750

PATIENT
  Sex: Male

DRUGS (2)
  1. ZELNORM [Suspect]
     Indication: GASTROINTESTINAL DISORDER
     Dosage: 6 MG, UNK
  2. ZELNORM [Suspect]
     Dosage: 1MG OR 2MG
     Dates: start: 20020101

REACTIONS (1)
  - COLONIC PSEUDO-OBSTRUCTION [None]
